FAERS Safety Report 21230452 (Version 1)
Quarter: 2022Q3

REPORT INFORMATION
  Report Type: Spontaneous
  Country: US (occurrence: US)
  Receive Date: 20220818
  Receipt Date: 20220818
  Transmission Date: 20221026
  Serious: Yes (Other)
  Sender: FDA-Public Use
  Company Number: US-TEVA-2022-US-2065498

PATIENT
  Sex: Male

DRUGS (4)
  1. AUSTEDO [Suspect]
     Active Substance: DEUTETRABENAZINE
     Indication: Tardive dyskinesia
     Route: 065
  2. DIPHENHYDRAMINE [Suspect]
     Active Substance: DIPHENHYDRAMINE
     Indication: Product used for unknown indication
     Route: 065
  3. Osmolex [Concomitant]
     Indication: Product used for unknown indication
  4. COGENTIN [Concomitant]
     Active Substance: BENZTROPINE MESYLATE
     Indication: Tardive dyskinesia

REACTIONS (9)
  - Dystonia [Unknown]
  - Suicidal behaviour [Unknown]
  - Pulmonary congestion [Unknown]
  - Condition aggravated [Unknown]
  - Drug intolerance [Unknown]
  - Reduced facial expression [Unknown]
  - Tachyphrenia [Unknown]
  - Insomnia [Unknown]
  - Feeling abnormal [Unknown]
